FAERS Safety Report 19080771 (Version 1)
Quarter: 2021Q2

REPORT INFORMATION
  Report Type: Spontaneous
  Country: US (occurrence: US)
  Receive Date: 20210401
  Receipt Date: 20210401
  Transmission Date: 20210717
  Serious: No
  Sender: FDA-Public Use
  Company Number: US-SA-2019SA102493

PATIENT
  Sex: Female

DRUGS (16)
  1. AUBAGIO [Suspect]
     Active Substance: TERIFLUNOMIDE
     Indication: PRODUCT USED FOR UNKNOWN INDICATION
     Dosage: 1 DF, QD
     Route: 048
     Dates: start: 20140825
  2. MYRBETRIQ [Concomitant]
     Active Substance: MIRABEGRON
  3. BUPROPION HYDROCHLORIDE. [Concomitant]
     Active Substance: BUPROPION HYDROCHLORIDE
  4. SPIRONOLACTONE. [Concomitant]
     Active Substance: SPIRONOLACTONE
  5. CARVEDILOL. [Concomitant]
     Active Substance: CARVEDILOL
  6. VICODIN [Concomitant]
     Active Substance: ACETAMINOPHEN\HYDROCODONE BITARTRATE
  7. POTASSIUM CHLORIDE. [Concomitant]
     Active Substance: POTASSIUM CHLORIDE
  8. REBIF REBIDOSE [Concomitant]
     Active Substance: INTERFERON BETA-1A
  9. VESICARE [Concomitant]
     Active Substance: SOLIFENACIN SUCCINATE
  10. SIMVASTATIN. [Concomitant]
     Active Substance: SIMVASTATIN
  11. BACLOFEN. [Concomitant]
     Active Substance: BACLOFEN
  12. REBIF [Concomitant]
     Active Substance: INTERFERON BETA-1A
  13. TOVIAZ [Concomitant]
     Active Substance: FESOTERODINE FUMARATE
  14. OMEPRAZOLE. [Concomitant]
     Active Substance: OMEPRAZOLE
  15. LISINOPRIL. [Concomitant]
     Active Substance: LISINOPRIL
  16. FUROSEMIDE. [Concomitant]
     Active Substance: FUROSEMIDE

REACTIONS (1)
  - Product dose omission issue [Unknown]
